FAERS Safety Report 11199166 (Version 1)
Quarter: 2015Q2

REPORT INFORMATION
  Report Type: Spontaneous
  Country: US (occurrence: US)
  Receive Date: 20150618
  Receipt Date: 20150618
  Transmission Date: 20150821
  Serious: Yes (Other)
  Sender: FDA-Public Use
  Company Number: US-TEVA-562915USA

PATIENT
  Sex: Female

DRUGS (1)
  1. LAMOTRIGINE. [Suspect]
     Active Substance: LAMOTRIGINE
     Indication: SEIZURE
     Route: 065

REACTIONS (6)
  - Ataxia [Unknown]
  - Intentional product use issue [Unknown]
  - Drug ineffective [Unknown]
  - Seizure [Unknown]
  - Diplopia [Unknown]
  - Product quality issue [Unknown]
